FAERS Safety Report 25467466 (Version 1)
Quarter: 2025Q2

REPORT INFORMATION
  Report Type: Spontaneous
  Country: US (occurrence: None)
  Receive Date: 20250621
  Receipt Date: 20250621
  Transmission Date: 20250717
  Serious: Yes (Other)
  Sender: FDA-CTU
  Company Number: None

PATIENT
  Age: 36 Year
  Sex: Female

DRUGS (2)
  1. BUSPIRONE HYDROCHLORIDE [Suspect]
     Active Substance: BUSPIRONE HYDROCHLORIDE
     Indication: Depression
  2. SERTRALINE [Suspect]
     Active Substance: SERTRALINE HYDROCHLORIDE

REACTIONS (9)
  - Headache [None]
  - Abdominal discomfort [None]
  - Product dispensing error [None]
  - Wrong product administered [None]
  - Depression [None]
  - Product label on wrong product [None]
  - Paranoia [None]
  - Irritability [None]
  - Crying [None]

NARRATIVE: CASE EVENT DATE: 20250516
